FAERS Safety Report 9320694 (Version 2)
Quarter: 2013Q2

REPORT INFORMATION
  Report Type: Report from Study
  Country: US (occurrence: US)
  Receive Date: 20130531
  Receipt Date: 20130610
  Transmission Date: 20140414
  Serious: Yes (Hospitalization)
  Sender: FDA-Public Use
  Company Number: US-ROCHE-1228887

PATIENT
  Age: 58 Year
  Sex: Male

DRUGS (13)
  1. RANIBIZUMAB [Suspect]
     Indication: DIABETIC RETINAL OEDEMA
     Route: 065
     Dates: start: 20130228
  2. RANIBIZUMAB [Suspect]
     Route: 065
     Dates: start: 20130404
  3. RANIBIZUMAB [Suspect]
     Route: 065
     Dates: start: 20130429
  4. ALLOPURINOL [Concomitant]
     Route: 048
  5. LIPITOR [Concomitant]
     Route: 048
  6. HYDROCHLOROTHIAZIDE/LISINOPRIL [Concomitant]
     Dosage: 20/125/MG
     Route: 048
  7. METFORMIN [Concomitant]
     Route: 048
  8. FOLIC ACID [Concomitant]
     Route: 048
  9. CELEXA (UNITED STATES) [Concomitant]
     Route: 048
  10. TRICOR (UNITED STATES) [Concomitant]
     Route: 048
  11. PLAVIX [Concomitant]
     Route: 048
  12. ASPIRIN [Concomitant]
     Route: 048
  13. PRED FORTE [Concomitant]
     Dosage: 1 GTT-DROPS
     Route: 065

REACTIONS (1)
  - Cerebrovascular accident [Recovered/Resolved]
